FAERS Safety Report 15364592 (Version 5)
Quarter: 2022Q3

REPORT INFORMATION
  Report Type: Report from Study
  Country: CA (occurrence: CA)
  Receive Date: 20180910
  Receipt Date: 20220810
  Transmission Date: 20221027
  Serious: Yes (Hospitalization, Disabling, Other)
  Sender: FDA-Public Use
  Company Number: CA-ABBVIE-18P-028-2477000-00

PATIENT
  Age: 32 Year
  Sex: Female

DRUGS (8)
  1. HUMIRA [Suspect]
     Active Substance: ADALIMUMAB
     Indication: Colitis ulcerative
     Route: 058
     Dates: start: 200809, end: 200809
  2. HUMIRA [Suspect]
     Active Substance: ADALIMUMAB
     Route: 058
     Dates: start: 20160401, end: 20220808
  3. AZATHIOPRINE [Suspect]
     Active Substance: AZATHIOPRINE
     Indication: Colitis ulcerative
     Route: 048
     Dates: start: 201304, end: 201304
  4. AZATHIOPRINE [Suspect]
     Active Substance: AZATHIOPRINE
     Route: 048
     Dates: start: 201604
  5. ASACOL [Concomitant]
     Active Substance: MESALAMINE
     Indication: Colitis ulcerative
     Route: 048
     Dates: start: 20160401, end: 20190506
  6. PAXIL [Concomitant]
     Active Substance: PAROXETINE HYDROCHLORIDE
     Indication: Anxiety
     Route: 048
     Dates: start: 2014
  7. RAMIPRIL [Concomitant]
     Active Substance: RAMIPRIL
     Indication: Hypertension
     Route: 048
     Dates: start: 2014
  8. DIANE 35: 2 mg/35 mcg [Concomitant]
     Indication: Turner^s syndrome
     Dosage: 2 MG/35 MCG
     Route: 048
     Dates: start: 2000

REACTIONS (1)
  - Tympanic membrane perforation [Recovered/Resolved]

NARRATIVE: CASE EVENT DATE: 20171001
